FAERS Safety Report 19960609 (Version 3)
Quarter: 2021Q4

REPORT INFORMATION
  Report Type: Spontaneous
  Country: US (occurrence: US)
  Receive Date: 20211015
  Receipt Date: 20211127
  Transmission Date: 20220304
  Serious: No
  Sender: FDA-Public Use
  Company Number: US-UNITED THERAPEUTICS-UNT-2021-018538

PATIENT
  Sex: Female
  Weight: 67.12 kg

DRUGS (4)
  1. TYVASO [Suspect]
     Active Substance: TREPROSTINIL
     Indication: Pulmonary arterial hypertension
     Dosage: 18 ?G, QID
     Dates: start: 20210915
  2. TYVASO [Suspect]
     Active Substance: TREPROSTINIL
     Dosage: 18-54 ?G, QID
     Dates: start: 202109
  3. TYVASO [Suspect]
     Active Substance: TREPROSTINIL
     Dosage: 54-72 ?G, QID
     Dates: start: 2021
  4. TYVASO [Suspect]
     Active Substance: TREPROSTINIL
     Dosage: 18-72 ?G, QID
     Dates: start: 2021, end: 2021

REACTIONS (6)
  - Headache [Unknown]
  - Oropharyngeal pain [Unknown]
  - Therapy non-responder [Unknown]
  - Productive cough [Unknown]
  - Haemoptysis [Unknown]
  - Sleep disorder [Unknown]

NARRATIVE: CASE EVENT DATE: 20210101
